FAERS Safety Report 12282172 (Version 1)
Quarter: 2016Q2

REPORT INFORMATION
  Report Type: Spontaneous
  Country: US (occurrence: None)
  Receive Date: 20160418
  Receipt Date: 20160418
  Transmission Date: 20160815
  Serious: Yes (Other)
  Sender: FDA-Public Use
  Company Number: None

PATIENT
  Age: 72 Year
  Sex: Female
  Weight: 54.43 kg

DRUGS (2)
  1. CARVEDIOLOL, 3.125MG AUROBINDO [Suspect]
     Active Substance: CARVEDILOL
     Indication: HYPERTENSION
     Route: 048
     Dates: start: 20151223, end: 20160410
  2. LISINOPRIL, 5MG ACCORD HEALTH [Suspect]
     Active Substance: LISINOPRIL
     Indication: HYPERTENSION
     Route: 048
     Dates: start: 20151223, end: 20160410

REACTIONS (2)
  - Urinary retention [None]
  - Faecaloma [None]

NARRATIVE: CASE EVENT DATE: 20160331
